FAERS Safety Report 12828437 (Version 1)
Quarter: 2016Q4

REPORT INFORMATION
  Report Type: Spontaneous
  Country: US (occurrence: US)
  Receive Date: 20161007
  Receipt Date: 20161007
  Transmission Date: 20170207
  Serious: Yes (Life-Threatening, Other)
  Sender: FDA-Public Use
  Company Number: US-009507513-1610USA001811

PATIENT
  Age: 81 Year
  Sex: Female

DRUGS (7)
  1. COZAAR [Suspect]
     Active Substance: LOSARTAN POTASSIUM
     Indication: HYPERTENSION
     Dosage: 50 MG, QD
     Route: 048
     Dates: start: 1999
  2. HEXADROL [Suspect]
     Active Substance: DEXAMETHASONE
     Indication: PLASMA CELL MYELOMA
     Dosage: 5 TABLETS ONCE A WEEK
     Route: 048
     Dates: start: 2014
  3. RANEXA [Suspect]
     Active Substance: RANOLAZINE
     Indication: ATRIAL SEPTAL DEFECT
     Dosage: 500 MG, TWICE DAILY
     Dates: start: 2015
  4. CHOLESTYRAMINE RESIN [Concomitant]
     Active Substance: CHOLESTYRAMINE
     Indication: DIARRHOEA
     Dosage: 4 G, QD
     Dates: start: 2014
  5. REVLIMID [Suspect]
     Active Substance: LENALIDOMIDE
     Indication: PLASMA CELL MYELOMA
     Dosage: 15 MG, ONCE DAILY
     Route: 048
     Dates: start: 20160808
  6. GABAPENTIN. [Concomitant]
     Active Substance: GABAPENTIN
     Indication: NEUROPATHY PERIPHERAL
     Dosage: 300 MG, TID
     Route: 048
     Dates: start: 201404
  7. REVLIMID [Suspect]
     Active Substance: LENALIDOMIDE
     Indication: PLASMA CELL MYELOMA
     Dosage: 25 MG, ONCE DAILY
     Route: 048
     Dates: start: 201412

REACTIONS (4)
  - Paraesthesia [Recovered/Resolved with Sequelae]
  - Limb discomfort [Recovered/Resolved with Sequelae]
  - Muscle spasms [Recovered/Resolved with Sequelae]
  - Musculoskeletal discomfort [Recovered/Resolved with Sequelae]

NARRATIVE: CASE EVENT DATE: 20160815
